FAERS Safety Report 8424604-4 (Version None)
Quarter: 2012Q2

REPORT INFORMATION
  Report Type: 
  Country: None (occurrence: None)
  Receive Date: 20120611
  Receipt Date: 20120606
  Transmission Date: 20120825
  Serious: Yes (Hospitalization)
  Sender: FDA-Public Use
  Company Number: US-AMGEN-USASP2012035374

PATIENT
  Age: 53 Year
  Sex: Female

DRUGS (1)
  1. ENBREL [Suspect]
     Indication: RHEUMATOID ARTHRITIS
     Dosage: 50 MG, QWK
     Dates: start: 20110501

REACTIONS (8)
  - DIARRHOEA [None]
  - CHOLECYSTECTOMY [None]
  - VOMITING [None]
  - ARTHRALGIA [None]
  - INTERVERTEBRAL DISC DEGENERATION [None]
  - INSOMNIA [None]
  - JOINT DESTRUCTION [None]
  - THERAPEUTIC RESPONSE DECREASED [None]
